FAERS Safety Report 5290773-0 (Version None)
Quarter: 2007Q2

REPORT INFORMATION
  Report Type: 
  Country: None (occurrence: None)
  Receive Date: 20070409
  Receipt Date: 20070329
  Transmission Date: 20071010
  Serious: Yes (Disabling)
  Sender: FDA-Public Use
  Company Number: GB-PFIZER INC-2007025935

PATIENT
  Age: 81 Year
  Sex: Female

DRUGS (5)
  1. ATORVASTATIN CALCIUM [Suspect]
     Indication: MYOCARDIAL ISCHAEMIA
     Route: 048
     Dates: start: 20060907, end: 20070212
  2. AMLODIPINE [Concomitant]
     Route: 048
  3. ISOSORBIDE MONONITRATE [Concomitant]
     Route: 048
  4. ISPAGHULA HUSK [Concomitant]
     Route: 048
  5. NICORANDIL [Concomitant]
     Route: 048

REACTIONS (3)
  - ASTHENIA [None]
  - MUSCLE ATROPHY [None]
  - MYOSITIS [None]
